FAERS Safety Report 21185148 (Version 3)
Quarter: 2022Q3

REPORT INFORMATION
  Report Type: Report from Study
  Country: US (occurrence: US)
  Receive Date: 20220808
  Receipt Date: 20220812
  Transmission Date: 20221027
  Serious: Yes (Other)
  Sender: FDA-Public Use
  Company Number: US-ABBVIE-22K-163-4494282-00

PATIENT
  Age: 27 Year
  Sex: Female
  Weight: 72.186 kg

DRUGS (2)
  1. ORILISSA [Suspect]
     Active Substance: ELAGOLIX SODIUM
     Indication: Endometriosis
     Route: 048
     Dates: start: 202105, end: 202109
  2. ORILISSA [Suspect]
     Active Substance: ELAGOLIX SODIUM
     Route: 048
     Dates: start: 202203

REACTIONS (5)
  - Ovarian cyst [Recovered/Resolved]
  - Uterine haemorrhage [Unknown]
  - Endometrial atrophy [Unknown]
  - Heavy menstrual bleeding [Not Recovered/Not Resolved]
  - Amenorrhoea [Unknown]

NARRATIVE: CASE EVENT DATE: 20220101
